FAERS Safety Report 12374103 (Version 1)
Quarter: 2016Q2

REPORT INFORMATION
  Report Type: Spontaneous
  Country: US (occurrence: US)
  Receive Date: 20160517
  Receipt Date: 20160517
  Transmission Date: 20160815
  Serious: Yes (Disabling)
  Sender: FDA-Public Use
  Company Number: US-EMCURE PHARMACEUTICALS LIMITED-1052290

PATIENT
  Age: 45 Year
  Sex: Male

DRUGS (1)
  1. CIDOFOVIR DIHYDRATE [Suspect]
     Active Substance: CIDOFOVIR
     Route: 051
     Dates: start: 20151123, end: 20151123

REACTIONS (1)
  - Aphonia [Not Recovered/Not Resolved]

NARRATIVE: CASE EVENT DATE: 20160510
